FAERS Safety Report 4369210-6 (Version None)
Quarter: 2004Q2

REPORT INFORMATION
  Report Type: 
  Country: None (occurrence: None)
  Receive Date: 20040525
  Receipt Date: 20040514
  Transmission Date: 20050107
  Serious: Yes (Death)
  Sender: FDA-Public Use
  Company Number: 2004UW10196

PATIENT
  Age: 67 Year
  Sex: Male

DRUGS (2)
  1. ZESTORETIC [Suspect]
     Indication: HYPERTENSION
  2. PLAVIX [Concomitant]

REACTIONS (3)
  - GASTROINTESTINAL HAEMORRHAGE [None]
  - HEPATIC FAILURE [None]
  - SEPSIS [None]
